FAERS Safety Report 8888376 (Version 2)
Quarter: 2012Q4

REPORT INFORMATION
  Report Type: 
  Country: JP (occurrence: JP)
  Receive Date: 20121106
  Receipt Date: 20121204
  Transmission Date: 20130627
  Serious: Yes (Hospitalization)
  Sender: FDA-Public Use
  Company Number: PHHY2012JP084834

PATIENT
  Age: 69 Year
  Sex: Male

DRUGS (5)
  1. NEORAL [Suspect]
     Indication: PUSTULAR PSORIASIS
     Dosage: 20 mg, UNK
     Route: 048
  2. NEORAL [Suspect]
     Dosage: 100 mg, UNK
     Route: 048
  3. NEORAL [Suspect]
     Dosage: 75 mg, UNK
     Route: 048
     Dates: end: 20111115
  4. TIGASON [Concomitant]
     Indication: PUSTULAR PSORIASIS
     Dosage: 20 mg, UNK
     Route: 048
  5. DERMOVATE [Concomitant]
     Indication: PUSTULAR PSORIASIS

REACTIONS (5)
  - Hepatocellular carcinoma [Recovering/Resolving]
  - Pustular psoriasis [Recovering/Resolving]
  - Condition aggravated [Recovering/Resolving]
  - Hepatitis B antibody positive [Recovering/Resolving]
  - Renal disorder [Not Recovered/Not Resolved]
